FAERS Safety Report 7042154-7 (Version None)
Quarter: 2010Q4

REPORT INFORMATION
  Report Type: 
  Country: None (occurrence: None)
  Receive Date: 20101013
  Receipt Date: 20100202
  Transmission Date: 20110411
  Serious: No
  Sender: FDA-Public Use
  Company Number: US-ASTRAZENECA-2010SE04684

PATIENT
  Age: 69 Year
  Sex: Male

DRUGS (5)
  1. SYMBICORT [Suspect]
     Dosage: 640 MCG
     Route: 055
     Dates: start: 20100128
  2. TOPROL-XL [Concomitant]
  3. AMITRIPTYLINE [Concomitant]
  4. VALIUM [Concomitant]
  5. HYTRIN [Concomitant]

REACTIONS (5)
  - LARYNGITIS [None]
  - LIP DRY [None]
  - OROPHARYNGEAL PAIN [None]
  - RHINORRHOEA [None]
  - THROAT IRRITATION [None]
